FAERS Safety Report 9255908 (Version 3)
Quarter: 2013Q2

REPORT INFORMATION
  Report Type: Report from Study
  Country: AR (occurrence: AR)
  Receive Date: 20130425
  Receipt Date: 20130603
  Transmission Date: 20140414
  Serious: Yes (Life-Threatening, Hospitalization)
  Sender: FDA-Public Use
  Company Number: AR-AMGEN-ARGCT2013028220

PATIENT
  Age: 50 Year
  Sex: Female
  Weight: 44 kg

DRUGS (5)
  1. DARBEPOETIN ALFA [Suspect]
     Indication: ANAEMIA OF MALIGNANT DISEASE
     Dosage: 500 MUG, Q3WK
     Dates: start: 20130313
  2. NAPROXENE [Concomitant]
     Indication: BACK PAIN
     Dosage: 500 MG, UNK
     Dates: start: 20130220
  3. OXYCODONE [Concomitant]
     Indication: BACK PAIN
     Dosage: 20 MG, UNK
     Dates: start: 20130220, end: 20130409
  4. CISPLATIN [Concomitant]
     Dosage: 70 MG/M2, UNK
     Dates: start: 20130104
  5. PEMETREXED [Concomitant]
     Dosage: 500 MG/M2, UNK
     Dates: start: 20130104

REACTIONS (2)
  - Dyspnoea [Not Recovered/Not Resolved]
  - Anaemia [Not Recovered/Not Resolved]
